FAERS Safety Report 21592583 (Version 1)
Quarter: 2022Q4

REPORT INFORMATION
  Report Type: Spontaneous
  Country: US (occurrence: None)
  Receive Date: 20221112
  Receipt Date: 20221112
  Transmission Date: 20230112
  Serious: Yes (Hospitalization)
  Sender: FDA-Public Use
  Company Number: None

PATIENT
  Sex: Female

DRUGS (2)
  1. LENALIDOMIDE [Suspect]
     Active Substance: LENALIDOMIDE
     Indication: Primary amyloidosis
     Dosage: 10 MG ORAL??TAKE ONE CAPSULE BY MOUTH DAILY FOR 21 DAYS FOLLOWED BY 7 DAY REST. TAKE WHOLE WITH WATE
     Route: 048
     Dates: start: 20221011
  2. XGEVA [Concomitant]

REACTIONS (2)
  - Pneumonia [None]
  - Therapy interrupted [None]
